FAERS Safety Report 4722857-7 (Version None)
Quarter: 2005Q3

REPORT INFORMATION
  Report Type: 
  Country: None (occurrence: None)
  Receive Date: 20050722
  Receipt Date: 20050715
  Transmission Date: 20060218
  Serious: Yes (Hospitalization)
  Sender: FDA-Public Use
  Company Number: JP-GLAXOSMITHKLINE-B0388053A

PATIENT
  Age: 59 Year
  Sex: Female
  Weight: 39 kg

DRUGS (9)
  1. RETROVIR [Suspect]
     Indication: ACQUIRED IMMUNODEFICIENCY SYNDROME
     Dosage: 300MG TWICE PER DAY
     Route: 048
     Dates: start: 20040701, end: 20050601
  2. EPIVIR [Concomitant]
     Route: 048
  3. EFAVIRENZ [Concomitant]
     Route: 048
  4. MEBRON [Concomitant]
     Route: 048
  5. CLARITHROMYCIN [Concomitant]
     Route: 048
  6. PREDONINE [Concomitant]
     Route: 065
  7. TRYPTANOL [Concomitant]
     Route: 048
  8. OMEPRAZOLE [Concomitant]
     Route: 065
  9. BAKTAR [Concomitant]

REACTIONS (2)
  - CARDIAC FAILURE [None]
  - HAEMOGLOBIN DECREASED [None]
